FAERS Safety Report 13486795 (Version 1)
Quarter: 2017Q2

REPORT INFORMATION
  Report Type: Spontaneous
  Country: KR (occurrence: KR)
  Receive Date: 20170426
  Receipt Date: 20170426
  Transmission Date: 20170830
  Serious: Yes (Death, Hospitalization, Other)
  Sender: FDA-Public Use
  Company Number: KR-MYLANLABS-2017M1025410

PATIENT

DRUGS (2)
  1. TRIAMCINOLONE [Suspect]
     Active Substance: TRIAMCINOLONE
     Indication: BACK PAIN
     Dosage: 40MG
     Route: 065
  2. LIDOCAINE. [Concomitant]
     Active Substance: LIDOCAINE
     Indication: BACK PAIN
     Route: 065

REACTIONS (7)
  - Streptococcal infection [Fatal]
  - Systemic inflammatory response syndrome [Unknown]
  - Subdural hygroma [Unknown]
  - Central nervous system infection [Fatal]
  - Pneumocephalus [Unknown]
  - Meningitis leptospiral [Fatal]
  - Neutrophilia [Unknown]
